FAERS Safety Report 9411882 (Version 4)
Quarter: 2013Q4

REPORT INFORMATION
  Report Type: Spontaneous
  Country: JP (occurrence: JP)
  Receive Date: 20130722
  Receipt Date: 20131127
  Transmission Date: 20140711
  Serious: Yes (Death, Hospitalization, Other)
  Sender: FDA-Public Use
  Company Number: PHHY2013JP077064

PATIENT
  Age: 82 Year
  Sex: Female

DRUGS (4)
  1. RIVASTIGMIN [Suspect]
     Indication: DEMENTIA ALZHEIMER^S TYPE
     Dosage: 4.5 MG, DAILY
     Route: 062
     Dates: start: 20130630, end: 20130712
  2. MEDET [Concomitant]
     Dosage: UNK UKN, UNK
  3. REBAMIPIDE [Concomitant]
  4. LOXONIN [Concomitant]

REACTIONS (4)
  - Pneumonia [Fatal]
  - Pyrexia [Fatal]
  - Altered state of consciousness [Recovered/Resolved]
  - Vomiting [Unknown]
